FAERS Safety Report 21860634 (Version 1)
Quarter: 2023Q1

REPORT INFORMATION
  Report Type: Spontaneous
  Country: US (occurrence: US)
  Receive Date: 20230113
  Receipt Date: 20230113
  Transmission Date: 20230417
  Serious: No
  Sender: FDA-Public Use
  Company Number: US-NOVOPROD-966885

PATIENT
  Age: 58 Year
  Sex: Female

DRUGS (1)
  1. WEGOVY [Suspect]
     Active Substance: SEMAGLUTIDE
     Indication: Product used for unknown indication
     Dosage: UNK
     Route: 058

REACTIONS (6)
  - Tremor [Recovered/Resolved]
  - Hypoglycaemia [Recovered/Resolved]
  - Increased appetite [Recovered/Resolved]
  - Blood pressure fluctuation [Recovered/Resolved]
  - Decreased appetite [Recovered/Resolved]
  - Drug dose titration not performed [Recovered/Resolved]
